FAERS Safety Report 11617741 (Version 6)
Quarter: 2019Q1

REPORT INFORMATION
  Report Type: Spontaneous
  Country: US (occurrence: US)
  Receive Date: 20151009
  Receipt Date: 20190228
  Transmission Date: 20190417
  Serious: Yes (Hospitalization, Other)
  Sender: FDA-Public Use
  Company Number: US-DSJP-DSU-2015-127917

PATIENT

DRUGS (3)
  1. BENICAR [Suspect]
     Active Substance: OLMESARTAN MEDOXOMIL
     Indication: PRODUCT USED FOR UNKNOWN INDICATION
     Dosage: UNK
     Dates: start: 201112
  2. BENICAR HCT [Suspect]
     Active Substance: HYDROCHLOROTHIAZIDE\OLMESARTAN MEDOXOMIL
     Dosage: 40/12.5 MG, QD
     Route: 048
     Dates: start: 20110413, end: 20140113
  3. BENICAR HCT [Suspect]
     Active Substance: HYDROCHLOROTHIAZIDE\OLMESARTAN MEDOXOMIL
     Indication: HYPERTENSION
     Dosage: 40/25 MG, UNK
     Dates: start: 20080723, end: 20110413

REACTIONS (14)
  - Sprue-like enteropathy [Recovering/Resolving]
  - Haemorrhoids [Unknown]
  - Gastroenteritis viral [Recovered/Resolved]
  - Liver injury [Unknown]
  - Acute kidney injury [Recovered/Resolved]
  - Large intestine polyp [Recovering/Resolving]
  - Gastrointestinal melanosis [Unknown]
  - Diverticulum [Unknown]
  - Cataract [Not Recovered/Not Resolved]
  - Rectal polyp [Unknown]
  - Hypotension [Recovered/Resolved]
  - Iron deficiency anaemia [Recovered/Resolved]
  - Rectal prolapse [Unknown]
  - Gastrooesophageal reflux disease [Unknown]

NARRATIVE: CASE EVENT DATE: 200905
